FAERS Safety Report 5776763-X (Version None)
Quarter: 2008Q2

REPORT INFORMATION
  Report Type: 
  Country: None (occurrence: None)
  Receive Date: 20080601
  Receipt Date: 20080115
  Transmission Date: 20081010
  Serious: No
  Sender: FDA-Public Use
  Company Number: US200712000618

PATIENT
  Age: 67 Year
  Sex: Female

DRUGS (2)
  1. BYETTA [Suspect]
     Indication: TYPE 2 DIABETES MELLITUS
     Dosage: 5 UG, SUBCUTANEOUS ;10 UG, SUBCUTANEOUS
     Route: 058
  2. METFORMIN HCL [Concomitant]

REACTIONS (1)
  - BLOOD GLUCOSE INCREASED [None]
